FAERS Safety Report 9790789 (Version 1)
Quarter: 2013Q4

REPORT INFORMATION
  Report Type: Report from Study
  Country: US (occurrence: US)
  Receive Date: 20131231
  Receipt Date: 20131231
  Transmission Date: 20140711
  Serious: Yes (Other)
  Sender: FDA-Public Use
  Company Number: US-MYLANLABS-2013S1028794

PATIENT
  Age: 13 Year
  Sex: Female

DRUGS (1)
  1. AMNESTEEM CAPSULES [Suspect]
     Dates: start: 20131113

REACTIONS (4)
  - Migraine [Not Recovered/Not Resolved]
  - Dehydration [Not Recovered/Not Resolved]
  - Vomiting [Not Recovered/Not Resolved]
  - Unevaluable event [Not Recovered/Not Resolved]
